FAERS Safety Report 5004738-7 (Version None)
Quarter: 2006Q1

REPORT INFORMATION
  Report Type: 
  Country: None (occurrence: None)
  Receive Date: 20060321
  Receipt Date: 20060209
  Transmission Date: 20060701
  Serious: No
  Sender: FDA-Public Use
  Company Number: 2006US000355

PATIENT
  Sex: Female

DRUGS (2)
  1. VESICARE [Suspect]
     Indication: HYPERTONIC BLADDER
     Dosage: 5 MG, ORAL
     Route: 048
     Dates: start: 20050101
  2. THYROID TAB [Concomitant]

REACTIONS (6)
  - CONSTIPATION [None]
  - DRY MOUTH [None]
  - MICTURITION URGENCY [None]
  - NASAL CONGESTION [None]
  - URINARY INCONTINENCE [None]
  - VISUAL DISTURBANCE [None]
